FAERS Safety Report 15305149 (Version 1)
Quarter: 2018Q3

REPORT INFORMATION
  Report Type: Report from Study
  Country: None (occurrence: DE)
  Receive Date: 20180822
  Receipt Date: 20180822
  Transmission Date: 20181010
  Serious: Yes (Other)
  Sender: FDA-Public Use
  Company Number: DE-ABBVIE-18K-062-2454377-00

PATIENT
  Age: 40 Year
  Sex: Female
  Weight: 79 kg

DRUGS (2)
  1. HUMIRA [Suspect]
     Active Substance: ADALIMUMAB
     Indication: PSORIASIS
     Route: 058
     Dates: start: 201708, end: 201807
  2. FEMIBION [Concomitant]
     Active Substance: VITAMINS
     Indication: PRODUCT USED FOR UNKNOWN INDICATION

REACTIONS (4)
  - Osteoarthritis [Not Recovered/Not Resolved]
  - Cervical dysplasia [Not Recovered/Not Resolved]
  - Nasopharyngitis [Recovered/Resolved]
  - Arthropathy [Not Recovered/Not Resolved]

NARRATIVE: CASE EVENT DATE: 2017
